FAERS Safety Report 7914748-5 (Version None)
Quarter: 2011Q4

REPORT INFORMATION
  Report Type: 
  Country: None (occurrence: None)
  Receive Date: 20111115
  Receipt Date: 20111104
  Transmission Date: 20120403
  Serious: Yes (Disabling)
  Sender: FDA-Public Use
  Company Number: PHHY2011GB89922

PATIENT
  Age: 23 Year
  Sex: Female
  Weight: 67.5 kg

DRUGS (14)
  1. CLOMIPRAMINE HCL [Concomitant]
     Dates: start: 20110613, end: 20110711
  2. IMPLANON [Concomitant]
  3. GAVISCON [Concomitant]
     Dosage: UNK
     Dates: start: 20110812, end: 20110909
  4. PROCHLORPERAZINE [Concomitant]
     Dates: start: 20110829, end: 20110902
  5. CHLORDIAZEPOXIDE [Concomitant]
     Dates: start: 20110927
  6. LORAZEPAM [Concomitant]
     Dates: start: 20110812, end: 20110826
  7. CEPHALEXIN [Concomitant]
     Dates: start: 20110829, end: 20110905
  8. ERYTHROMYCIN ETHYLSUCCINATE [Concomitant]
     Dates: start: 20110909, end: 20110914
  9. PROCHLORPERAZINE [Concomitant]
     Dates: start: 20110909, end: 20110910
  10. CYCLIZINE [Concomitant]
     Dates: start: 20110812, end: 20110813
  11. METOCLOPRAMIDE [Concomitant]
     Dates: start: 20110914
  12. CYCLIZINE [Concomitant]
     Dates: start: 20110830, end: 20110831
  13. ONDANSETRON [Suspect]
     Route: 065
  14. CLOMIPRAMINE HCL [Concomitant]
     Dates: start: 20110812, end: 20110909

REACTIONS (1)
  - MORBID THOUGHTS [None]
